FAERS Safety Report 14175497 (Version 2)
Quarter: 2018Q1

REPORT INFORMATION
  Report Type: Spontaneous
  Country: CA (occurrence: CA)
  Receive Date: 20171109
  Receipt Date: 20180221
  Transmission Date: 20180508
  Serious: Yes (Other)
  Sender: FDA-Public Use
  Company Number: CA-SA-2017SA210609

PATIENT
  Sex: Female

DRUGS (20)
  1. ACTEMRA [Suspect]
     Active Substance: TOCILIZUMAB
     Route: 065
     Dates: start: 201111, end: 201306
  2. METHOTREXATE. [Suspect]
     Active Substance: METHOTREXATE
     Indication: ABDOMINAL DISCOMFORT
     Route: 058
     Dates: start: 2009, end: 201606
  3. METHOTREXATE. [Suspect]
     Active Substance: METHOTREXATE
     Indication: ABDOMINAL DISCOMFORT
     Route: 058
     Dates: start: 2009, end: 201606
  4. METHOTREXATE. [Suspect]
     Active Substance: METHOTREXATE
     Indication: PULMONARY MASS
     Route: 058
     Dates: start: 2009, end: 201606
  5. HUMIRA [Suspect]
     Active Substance: ADALIMUMAB
     Dosage: SUBCUTANEOUS SOLUTION
     Route: 065
     Dates: start: 200412, end: 200504
  6. REMICADE [Suspect]
     Active Substance: INFLIXIMAB
     Route: 065
     Dates: start: 200505, end: 200609
  7. ARAVA [Suspect]
     Active Substance: LEFLUNOMIDE
     Route: 048
     Dates: start: 201607, end: 201607
  8. ENBREL [Suspect]
     Active Substance: ETANERCEPT
     Indication: RHEUMATOID ARTHRITIS
     Route: 065
     Dates: start: 201312, end: 20161104
  9. METHOTREXATE. [Suspect]
     Active Substance: METHOTREXATE
     Indication: ABDOMINAL DISCOMFORT
     Route: 058
  10. SIMPONI [Suspect]
     Active Substance: GOLIMUMAB
     Dosage: SUBCUTANEOUS SOLUTION
     Route: 065
     Dates: start: 201306, end: 201307
  11. ARAVA [Suspect]
     Active Substance: LEFLUNOMIDE
     Route: 048
  12. METHOTREXATE. [Suspect]
     Active Substance: METHOTREXATE
     Indication: RHEUMATOID ARTHRITIS
     Route: 058
     Dates: start: 2009, end: 201606
  13. METHOTREXATE. [Suspect]
     Active Substance: METHOTREXATE
     Indication: RHEUMATOID ARTHRITIS
     Route: 058
  14. CIMZIA [Suspect]
     Active Substance: CERTOLIZUMAB PEGOL
     Dosage: SUBCUTANEOUS SOLUTION
     Route: 065
     Dates: start: 201005, end: 201109
  15. METHOTREXATE. [Suspect]
     Active Substance: METHOTREXATE
     Indication: PULMONARY MASS
     Route: 058
  16. METHOTREXATE. [Suspect]
     Active Substance: METHOTREXATE
     Indication: PULMONARY MASS
     Route: 058
     Dates: start: 2009, end: 201606
  17. METHOTREXATE. [Suspect]
     Active Substance: METHOTREXATE
     Indication: PULMONARY MASS
     Route: 058
  18. METHOTREXATE. [Suspect]
     Active Substance: METHOTREXATE
     Indication: ABDOMINAL DISCOMFORT
     Route: 058
  19. RITUXAN [Suspect]
     Active Substance: RITUXIMAB
     Route: 065
     Dates: start: 200909, end: 201005
  20. ARTHROTEC [Concomitant]
     Active Substance: DICLOFENAC SODIUM\MISOPROSTOL
     Indication: RHEUMATOID ARTHRITIS
     Route: 065

REACTIONS (5)
  - Rheumatoid arthritis [Recovering/Resolving]
  - Pulmonary mass [Recovering/Resolving]
  - Drug ineffective [Unknown]
  - Lower respiratory tract infection [Recovering/Resolving]
  - Palpitations [Recovering/Resolving]
